FAERS Safety Report 25987089 (Version 1)
Quarter: 2025Q4

REPORT INFORMATION
  Report Type: Spontaneous
  Country: US (occurrence: US)
  Receive Date: 20251103
  Receipt Date: 20251103
  Transmission Date: 20260117
  Serious: Yes (Hospitalization, Other)
  Sender: TWI PHARMACEUTICALS
  Company Number: US-TWI PHARMACEUTICAL, INC-20251001376

PATIENT
  Age: 32 Year
  Sex: Female

DRUGS (3)
  1. FLUPHENAZINE HYDROCHLORIDE [Suspect]
     Active Substance: FLUPHENAZINE HYDROCHLORIDE
     Indication: Antipsychotic therapy
     Dosage: 15 MG, BID (TWICE A DAY FOR 6 MONTHS)
     Route: 065
  2. FLUPHENAZINE HYDROCHLORIDE [Suspect]
     Active Substance: FLUPHENAZINE HYDROCHLORIDE
     Dosage: 10 MG, BID
     Route: 065
  3. RISPERIDONE [Concomitant]
     Active Substance: RISPERIDONE
     Indication: Antipsychotic therapy
     Dosage: 2 MG, BID
     Route: 065

REACTIONS (2)
  - Delusion [Recovering/Resolving]
  - Hyperprolactinaemia [Recovering/Resolving]
